FAERS Safety Report 6981865-6 (Version None)
Quarter: 2010Q3

REPORT INFORMATION
  Report Type: 
  Country: None (occurrence: None)
  Receive Date: 20100909
  Receipt Date: 20100901
  Transmission Date: 20110219
  Serious: Yes (Hospitalization, Other)
  Sender: FDA-Public Use
  Company Number: 017007

PATIENT
  Sex: Female
  Weight: 44 kg

DRUGS (5)
  1. CIMZIA [Suspect]
     Indication: CROHN'S DISEASE
     Dosage: 400 MG 1X/MONTH SUBCUTANEOUS
     Route: 058
     Dates: start: 20100531
  2. PREDNISONE [Concomitant]
  3. FERROUS SULFATE [Concomitant]
  4. VITAMIN D [Concomitant]
  5. CALCIUM [Concomitant]

REACTIONS (8)
  - ABDOMINAL PAIN [None]
  - ASTHENIA [None]
  - COUGH [None]
  - DIARRHOEA [None]
  - MIGRAINE [None]
  - NASOPHARYNGITIS [None]
  - PYREXIA [None]
  - WEIGHT DECREASED [None]
